FAERS Safety Report 7003343-0 (Version None)
Quarter: 2010Q3

REPORT INFORMATION
  Report Type: 
  Country: None (occurrence: None)
  Receive Date: 20100920
  Receipt Date: 20100907
  Transmission Date: 20110219
  Serious: Yes (Hospitalization)
  Sender: FDA-Public Use
  Company Number: DK-WATSON-2010-12055

PATIENT
  Sex: Female

DRUGS (3)
  1. TRANDOLAPRIL (WATSON LABORATORIES) [Suspect]
     Indication: HYPERTENSION
     Dosage: 2 MG, DAILY
     Route: 048
     Dates: start: 20100825
  2. CENTYL MED KALIUMKLORID [Concomitant]
     Indication: HYPERTENSION
     Dosage: UNK
     Route: 048
  3. ELTROXIN [Concomitant]
     Indication: MYXOEDEMA

REACTIONS (4)
  - DRUG INEFFECTIVE [None]
  - DYSURIA [None]
  - OEDEMA [None]
  - RENAL FAILURE [None]
